FAERS Safety Report 19442855 (Version 1)
Quarter: 2021Q2

REPORT INFORMATION
  Report Type: Spontaneous
  Country: US (occurrence: US)
  Receive Date: 20210618
  Receipt Date: 20210618
  Transmission Date: 20210717
  Serious: Yes (Hospitalization)
  Sender: FDA-Public Use
  Company Number: None

PATIENT
  Age: 87 Year
  Sex: Female

DRUGS (8)
  1. VITAMIN B12 [Concomitant]
     Active Substance: CYANOCOBALAMIN
  2. ASPIRIN 81 MG [Concomitant]
     Active Substance: ASPIRIN
  3. NINLARO [Suspect]
     Active Substance: IXAZOMIB CITRATE
     Indication: PLASMA CELL MYELOMA
     Route: 048
     Dates: start: 20210504
  4. DEXAMETHASONE. [Concomitant]
     Active Substance: DEXAMETHASONE
  5. TRAMADOL. [Concomitant]
     Active Substance: TRAMADOL
  6. CANUL [Concomitant]
  7. GABAPENTIN. [Concomitant]
     Active Substance: GABAPENTIN
  8. REVLIMID [Concomitant]
     Active Substance: LENALIDOMIDE

REACTIONS (1)
  - Fall [None]
